FAERS Safety Report 25691205 (Version 1)
Quarter: 2025Q3

REPORT INFORMATION
  Report Type: Spontaneous
  Country: CN (occurrence: CN)
  Receive Date: 20250818
  Receipt Date: 20250818
  Transmission Date: 20251020
  Serious: Yes (Other)
  Sender: PFIZER
  Company Number: CN-PFIZER INC-PV202500098377

PATIENT
  Age: 76 Year
  Sex: Male
  Weight: 59 kg

DRUGS (1)
  1. XALKORI [Suspect]
     Active Substance: CRIZOTINIB
     Indication: Lung neoplasm malignant
     Dosage: 250 MG, 2X/DAY
     Route: 048
     Dates: start: 20240322, end: 20250701

REACTIONS (2)
  - Eyelid oedema [Recovered/Resolved]
  - Oedema peripheral [Recovered/Resolved]

NARRATIVE: CASE EVENT DATE: 20250621
